FAERS Safety Report 18594429 (Version 1)
Quarter: 2020Q4

REPORT INFORMATION
  Report Type: Spontaneous
  Country: US (occurrence: US)
  Receive Date: 20201209
  Receipt Date: 20201209
  Transmission Date: 20210114
  Serious: No
  Sender: FDA-Public Use
  Company Number: US-ASTRAZENECA-2020SF50646

PATIENT
  Sex: Male
  Weight: 83.9 kg

DRUGS (5)
  1. BRIMONIDINE TARTRATE. [Concomitant]
     Active Substance: BRIMONIDINE TARTRATE
  2. LATANOPROST. [Concomitant]
     Active Substance: LATANOPROST
  3. TIMOLOL. [Concomitant]
     Active Substance: TIMOLOL
  4. DORZOLAMIDE [Concomitant]
     Active Substance: DORZOLAMIDE
  5. BYDUREON BCISE [Suspect]
     Active Substance: EXENATIDE
     Indication: TYPE 2 DIABETES MELLITUS
     Route: 058
     Dates: start: 2020

REACTIONS (13)
  - Dysphonia [Unknown]
  - Cold sweat [Unknown]
  - Chest pain [Recovered/Resolved]
  - Body temperature decreased [Unknown]
  - Dizziness [Not Recovered/Not Resolved]
  - Diarrhoea [Unknown]
  - Abdominal pain [Unknown]
  - Blood glucose increased [Unknown]
  - Vision blurred [Unknown]
  - Blood pressure increased [Unknown]
  - Glaucoma [Unknown]
  - Malaise [Unknown]
  - Product dose omission issue [Unknown]
